FAERS Safety Report 9230558 (Version 1)
Quarter: 2013Q2

REPORT INFORMATION
  Report Type: Other
  Country: IL (occurrence: IL)
  Receive Date: 20130415
  Receipt Date: 20130415
  Transmission Date: 20140414
  Serious: Yes (Other)
  Sender: FDA-Public Use
  Company Number: IL-BRISTOL-MYERS SQUIBB COMPANY-18757732

PATIENT
  Age: 31 Year
  Sex: Male

DRUGS (5)
  1. BCNU [Suspect]
     Indication: NON-HODGKIN^S LYMPHOMA
  2. VINCRISTINE [Suspect]
     Indication: NON-HODGKIN^S LYMPHOMA
  3. METHOTREXATE [Suspect]
     Indication: NON-HODGKIN^S LYMPHOMA
  4. CYCLOPHOSPHAMIDE [Suspect]
     Indication: NON-HODGKIN^S LYMPHOMA
  5. DOXORUBICIN [Suspect]
     Indication: NON-HODGKIN^S LYMPHOMA

REACTIONS (1)
  - Infertility male [Unknown]
